FAERS Safety Report 7364675-X (Version None)
Quarter: 2011Q1

REPORT INFORMATION
  Report Type: 
  Country: None (occurrence: None)
  Receive Date: 20110315
  Receipt Date: 20110315
  Transmission Date: 20110831
  Serious: Yes (Hospitalization)
  Sender: FDA-Public Use
  Company Number: None

PATIENT
  Age: 55 Year
  Sex: Female
  Weight: 65.9 kg

DRUGS (1)
  1. LEVULAN [Suspect]
     Indication: BRAIN NEOPLASM
     Dosage: 20 MG/KG ONCE PO
     Route: 048
     Dates: start: 20110211, end: 20110211

REACTIONS (3)
  - FACE OEDEMA [None]
  - POST PROCEDURAL COMPLICATION [None]
  - LOCALISED OEDEMA [None]
